FAERS Safety Report 18474587 (Version 1)
Quarter: 2020Q4

REPORT INFORMATION
  Report Type: Spontaneous
  Country: CA (occurrence: CA)
  Receive Date: 20201106
  Receipt Date: 20201106
  Transmission Date: 20210114
  Serious: Yes (Other)
  Sender: FDA-Public Use
  Company Number: CA-AMNEAL PHARMACEUTICALS-2020-AMRX-03488

PATIENT
  Sex: Male

DRUGS (3)
  1. MIRABEGRON [Suspect]
     Active Substance: MIRABEGRON
     Dosage: 50 MILLIGRAM, DAILY
     Route: 065
  2. TAMSULOSIN HYDROCHLORIDE. [Suspect]
     Active Substance: TAMSULOSIN HYDROCHLORIDE
     Indication: BENIGN PROSTATIC HYPERPLASIA
     Dosage: 0.4 MILLIGRAM, DAILY
     Route: 065
  3. MIRABEGRON [Suspect]
     Active Substance: MIRABEGRON
     Indication: HYPERTONIC BLADDER
     Dosage: 25 MILLIGRAM, DAILY
     Route: 065

REACTIONS (2)
  - Cerebral infarction [Unknown]
  - Acute myocardial infarction [Unknown]
